FAERS Safety Report 19470152 (Version 1)
Quarter: 2021Q2

REPORT INFORMATION
  Report Type: Report from Study
  Country: AU (occurrence: AU)
  Receive Date: 20210628
  Receipt Date: 20210628
  Transmission Date: 20210717
  Serious: Yes (Other)
  Sender: FDA-Public Use
  Company Number: AU-TAKEDA-2021TUS039900

PATIENT

DRUGS (1)
  1. BORTEZOMIB. [Suspect]
     Active Substance: BORTEZOMIB
     Indication: PLASMA CELL MYELOMA
     Dosage: UNK
     Route: 058

REACTIONS (6)
  - Gastrointestinal disorder [Unknown]
  - Therapy non-responder [Unknown]
  - Cytopenia [Unknown]
  - Malaise [Unknown]
  - Infection [Unknown]
  - Neuropathy peripheral [Unknown]
